FAERS Safety Report 5752858-1 (Version None)
Quarter: 2008Q2

REPORT INFORMATION
  Report Type: 
  Country: None (occurrence: None)
  Receive Date: 20080529
  Receipt Date: 20080520
  Transmission Date: 20081010
  Serious: Yes (Death)
  Sender: FDA-Public Use
  Company Number: HU-PFIZER INC-2008044126

PATIENT
  Age: 58 Year
  Sex: Male

DRUGS (5)
  1. VIAGRA [Suspect]
     Route: 048
     Dates: start: 20080518, end: 20080518
  2. INSULIN [Concomitant]
     Route: 058
  3. ORGANIC NITRATES [Concomitant]
     Route: 062
  4. BISOPROLOL [Concomitant]
     Route: 048
  5. ADEXOR [Concomitant]
     Route: 048

REACTIONS (1)
  - SUDDEN DEATH [None]
